FAERS Safety Report 4483389-7 (Version None)
Quarter: 2004Q4

REPORT INFORMATION
  Report Type: 
  Country: None (occurrence: None)
  Receive Date: 20041020
  Receipt Date: 20041005
  Transmission Date: 20050328
  Serious: Yes (Other)
  Sender: FDA-Public Use
  Company Number: 2004-BP-07037AU

PATIENT
  Age: 79 Year
  Sex: Female

DRUGS (2)
  1. SPIRIVA [Suspect]
     Indication: CHRONIC OBSTRUCTIVE AIRWAYS DISEASE
     Dosage: 18 MCG (18 MCG, 18MCG DAILY), IH
     Route: 055
     Dates: start: 20040101, end: 20040701
  2. SERETIDE [Concomitant]

REACTIONS (2)
  - APHONIA [None]
  - HOARSENESS [None]
